FAERS Safety Report 4469954-1 (Version None)
Quarter: 2004Q3

REPORT INFORMATION
  Report Type: 
  Country: None (occurrence: None)
  Receive Date: 20040920
  Receipt Date: 20040713
  Transmission Date: 20050211
  Serious: No
  Sender: FDA-Public Use
  Company Number: A-US2004-06834

PATIENT
  Age: 58 Year
  Sex: Female

DRUGS (18)
  1. TRACLEER [Suspect]
     Indication: SKIN ULCER
     Dosage: SEE IMAGE
     Route: 048
     Dates: start: 20040701, end: 20040701
  2. TRACLEER [Suspect]
     Indication: SKIN ULCER
     Dosage: SEE IMAGE
     Route: 048
     Dates: start: 20040716, end: 20040802
  3. TRACLEER [Suspect]
     Indication: SKIN ULCER
     Dosage: SEE IMAGE
     Route: 048
     Dates: start: 20040701
  4. CARDURA [Suspect]
     Dosage: 1 MG, BID
     Dates: end: 20040712
  5. PROTONIX [Concomitant]
  6. METHOTREXATE [Concomitant]
  7. PROCARDIA [Concomitant]
  8. FOLIC ACID [Concomitant]
  9. ZOLOFT [Concomitant]
  10. CALCIUM (CALCIUM) [Concomitant]
  11. TRENTAL [Concomitant]
  12. ESTROGEN RING [Concomitant]
  13. PROVERA [Concomitant]
  14. ASPIRIN [Concomitant]
  15. VICODIN [Concomitant]
  16. DOXAZOSIN (DOXAZOSIN) [Concomitant]
  17. DOXEPIN (DOXEPIN) [Concomitant]
  18. CELEBREX [Concomitant]

REACTIONS (3)
  - ARTHRALGIA [None]
  - JOINT SWELLING [None]
  - OEDEMA PERIPHERAL [None]
